FAERS Safety Report 4580641-1 (Version None)
Quarter: 2005Q1

REPORT INFORMATION
  Report Type: 
  Country: None (occurrence: None)
  Receive Date: 20050214
  Receipt Date: 20040504
  Transmission Date: 20050727
  Serious: No
  Sender: FDA-Public Use
  Company Number: US-GLAXOSMITHKLINE-A0509432A

PATIENT
  Sex: Male

DRUGS (7)
  1. LAMICTAL [Suspect]
     Indication: ILL-DEFINED DISORDER
     Dosage: 75MG TWICE PER DAY
     Route: 048
     Dates: start: 20031114, end: 20040430
  2. VICODIN [Concomitant]
  3. DEPAKOTE [Concomitant]
  4. WELLBUTRIN SR [Concomitant]
  5. CELEXA [Concomitant]
  6. SEROQUEL [Concomitant]
  7. ATIVAN [Concomitant]

REACTIONS (1)
  - VISUAL DISTURBANCE [None]
